FAERS Safety Report 9424101 (Version 2)
Quarter: 2013Q3

REPORT INFORMATION
  Report Type: Spontaneous
  Country: DE (occurrence: DE)
  Receive Date: 20130729
  Receipt Date: 20130826
  Transmission Date: 20140515
  Serious: Yes (Life-Threatening, Hospitalization)
  Sender: FDA-Public Use
  Company Number: DE-JNJFOC-20130713789

PATIENT
  Sex: Male
  Weight: 78 kg

DRUGS (4)
  1. ACETYLSALICYLIC ACID [Suspect]
     Indication: PRODUCT USED FOR UNKNOWN INDICATION
     Route: 048
  2. TICAGRELOR [Interacting]
     Indication: PRODUCT USED FOR UNKNOWN INDICATION
     Route: 065
  3. XARELTO [Concomitant]
     Indication: PRODUCT USED FOR UNKNOWN INDICATION
     Route: 065
     Dates: start: 20130107
  4. XARELTO [Concomitant]
     Indication: PRODUCT USED FOR UNKNOWN INDICATION
     Route: 065

REACTIONS (7)
  - Mallory-Weiss syndrome [Recovering/Resolving]
  - Gastrointestinal haemorrhage [Recovering/Resolving]
  - Dyspnoea [Recovering/Resolving]
  - Decreased appetite [Unknown]
  - Drug interaction [Unknown]
  - Melaena [Unknown]
  - Vomiting [Unknown]
